FAERS Safety Report 6748663-X (Version None)
Quarter: 2010Q2

REPORT INFORMATION
  Report Type: 
  Country: None (occurrence: None)
  Receive Date: 20100601
  Receipt Date: 20100524
  Transmission Date: 20101027
  Serious: Yes (Hospitalization, Other)
  Sender: FDA-Public Use
  Company Number: CN-JNJFOC-20100509407

PATIENT
  Age: 73 Year
  Sex: Male

DRUGS (1)
  1. SPORANOX [Suspect]
     Indication: ONYCHOMYCOSIS
     Route: 048

REACTIONS (12)
  - BLOOD BILIRUBIN INCREASED [None]
  - DECREASED APPETITE [None]
  - DRUG TOXICITY [None]
  - FATIGUE [None]
  - HYPOACUSIS [None]
  - LOBAR PNEUMONIA [None]
  - NAUSEA [None]
  - OEDEMA PERIPHERAL [None]
  - PLEURAL EFFUSION [None]
  - PNEUMONIA [None]
  - URINE COLOUR ABNORMAL [None]
  - VOMITING [None]
